FAERS Safety Report 23792762 (Version 1)
Quarter: 2024Q2

REPORT INFORMATION
  Report Type: Spontaneous
  Country: US (occurrence: US)
  Receive Date: 20240429
  Receipt Date: 20240429
  Transmission Date: 20240716
  Serious: Yes (Death, Hospitalization, Other)
  Sender: FDA-Public Use
  Company Number: US-IPCA LABORATORIES LIMITED-IPC-2024-US-000999

PATIENT

DRUGS (1)
  1. HYDROXYCHLOROQUINE [Suspect]
     Active Substance: HYDROXYCHLOROQUINE
     Indication: Chronic cutaneous lupus erythematosus
     Dosage: 200 MILLIGRAM, BID
     Route: 065

REACTIONS (9)
  - Drug-induced liver injury [Fatal]
  - Hepatic cirrhosis [Fatal]
  - Metabolic encephalopathy [Fatal]
  - Intestinal ischaemia [Fatal]
  - Hepatic enzyme increased [Fatal]
  - Abdominal distension [Fatal]
  - Peripheral swelling [Fatal]
  - Pneumatosis [Fatal]
  - Disease progression [Fatal]
